FAERS Safety Report 7092817-2 (Version None)
Quarter: 2010Q4

REPORT INFORMATION
  Report Type: 
  Country: None (occurrence: None)
  Receive Date: 20101110
  Receipt Date: 20101103
  Transmission Date: 20110411
  Serious: Yes (Other)
  Sender: FDA-Public Use
  Company Number: US-PFIZER INC-2008094159

PATIENT
  Sex: Male
  Weight: 72.562 kg

DRUGS (4)
  1. REVATIO [Suspect]
     Indication: PULMONARY ARTERIAL HYPERTENSION
     Dosage: 20 MG, 3X/DAY
     Route: 048
     Dates: start: 20060101, end: 20090301
  2. BOSENTAN [Concomitant]
     Indication: PULMONARY ARTERIAL HYPERTENSION
  3. PREDNISONE [Concomitant]
  4. WARFARIN [Concomitant]

REACTIONS (3)
  - DEAFNESS [None]
  - DIZZINESS [None]
  - TINNITUS [None]
